FAERS Safety Report 8328208-3 (Version None)
Quarter: 2012Q2

REPORT INFORMATION
  Report Type: 
  Country: None (occurrence: None)
  Receive Date: 20120502
  Receipt Date: 20120425
  Transmission Date: 20120825
  Serious: Yes (Other)
  Sender: FDA-Public Use
  Company Number: US-PFIZER INC-2012103306

PATIENT
  Age: 65 Year
  Sex: Female

DRUGS (2)
  1. DETROL [Suspect]
     Indication: URINARY INCONTINENCE
     Dosage: UNK
  2. ARICEPT [Concomitant]
     Indication: DEMENTIA ALZHEIMER'S TYPE

REACTIONS (4)
  - COGNITIVE DISORDER [None]
  - LACK OF SPONTANEOUS SPEECH [None]
  - APHAGIA [None]
  - MENTAL STATUS CHANGES [None]
